FAERS Safety Report 17887662 (Version 1)
Quarter: 2020Q2

REPORT INFORMATION
  Report Type: Spontaneous
  Country: NL (occurrence: NL)
  Receive Date: 20200612
  Receipt Date: 20200612
  Transmission Date: 20200714
  Serious: Yes (Other)
  Sender: FDA-Public Use
  Company Number: NL-TEVA-2020-NL-1246654

PATIENT
  Age: 79 Year
  Sex: Male

DRUGS (8)
  1. TRANSIDERM 5 [Concomitant]
     Dosage: AT 10 PM, 1 DOSAGE FORM
  2. FUROSEMIDE 40MG [Concomitant]
     Active Substance: FUROSEMIDE
     Dosage: 40 MG
     Dates: start: 20020423
  3. DICLOFENAC RETARD 100MG [Suspect]
     Active Substance: DICLOFENAC
     Dosage: 100 MG
     Route: 065
     Dates: start: 20020424, end: 20020427
  4. VENTOLIN DISKUS 200MCG [Concomitant]
     Dosage: 600 MCG
     Dates: start: 20020415
  5. NORVASC [Concomitant]
     Active Substance: AMLODIPINE BESYLATE
     Dosage: 5 MG
  6. ZESTRIL 20MG [Concomitant]
     Dosage: 20 MG
  7. CELIPROLOL 200MG [Concomitant]
     Dosage: 200 MG
  8. ZOCOR [Concomitant]
     Active Substance: SIMVASTATIN
     Dosage: 20 MG

REACTIONS (1)
  - Face oedema [Recovered/Resolved]

NARRATIVE: CASE EVENT DATE: 20020426
